FAERS Safety Report 6826333-7 (Version None)
Quarter: 2010Q3

REPORT INFORMATION
  Report Type: 
  Country: None (occurrence: None)
  Receive Date: 20100709
  Receipt Date: 20100705
  Transmission Date: 20110219
  Serious: Yes (Death, Other)
  Sender: FDA-Public Use
  Company Number: PHHY2010GB11412

PATIENT
  Sex: Female

DRUGS (5)
  1. CLOZARIL [Suspect]
     Indication: SCHIZOPHRENIA
     Dosage: 500MG/DAY
     Route: 048
     Dates: start: 19941201
  2. TRIHEXYPHENIDYL HCL [Suspect]
     Indication: EXTRAPYRAMIDAL DISORDER
     Dosage: 1 MG, BID
     Route: 048
  3. HYOSCINE HBR HYT [Suspect]
     Indication: SALIVARY HYPERSECRETION
  4. VALPROATE SODIUM [Suspect]
     Indication: MOOD ALTERED
     Dosage: UNK
     Route: 048
  5. LACTULOSE [Concomitant]
     Indication: CONSTIPATION
     Dosage: 30ML/DAY
     Route: 048

REACTIONS (17)
  - ABDOMINAL COMPARTMENT SYNDROME [None]
  - ABDOMINAL DISTENSION [None]
  - ABDOMINAL PAIN [None]
  - BOWEL MOVEMENT IRREGULARITY [None]
  - COAGULOPATHY [None]
  - COLECTOMY [None]
  - CONSTIPATION [None]
  - DIABETES MELLITUS [None]
  - HAEMODYNAMIC INSTABILITY [None]
  - HYPOTENSION [None]
  - HYPOTHERMIA [None]
  - ILEOSTOMY [None]
  - INTESTINAL OBSTRUCTION [None]
  - LAPAROTOMY [None]
  - METABOLIC ACIDOSIS [None]
  - MULTI-ORGAN FAILURE [None]
  - TACHYCARDIA [None]
